FAERS Safety Report 5299012-8 (Version None)
Quarter: 2007Q2

REPORT INFORMATION
  Report Type: 
  Country: None (occurrence: None)
  Receive Date: 20070402
  Receipt Date: 20070319
  Transmission Date: 20071010
  Serious: Yes (Hospitalization)
  Sender: FDA-Public Use
  Company Number: 200711722

PATIENT
  Age: 27 Year
  Sex: Female

DRUGS (4)
  1. RHOPHYLAC (IMMUNOGLOBULIN HUMAN ANTI-RH) (LZB BEHRING) [Suspect]
     Indication: METRORRHAGIA
     Dosage: SEE IMAGE
     Dates: start: 20061227, end: 20061227
  2. RHOPHYLAC (IMMUNOGLOBULIN HUMAN ANTI-RH) (LZB BEHRING) [Suspect]
     Indication: PROPHYLAXIS AGAINST RH ISOIMMUNISATION
     Dosage: SEE IMAGE
     Dates: start: 20061227, end: 20061227
  3. RHOPHYLAC (IMMUNOGLOBULIN HUMAN ANTI-RH) (LZB BEHRING) [Suspect]
     Indication: METRORRHAGIA
     Dosage: SEE IMAGE
     Dates: start: 20070128, end: 20070128
  4. RHOPHYLAC (IMMUNOGLOBULIN HUMAN ANTI-RH) (LZB BEHRING) [Suspect]
     Indication: PROPHYLAXIS AGAINST RH ISOIMMUNISATION
     Dosage: SEE IMAGE
     Dates: start: 20070128, end: 20070128

REACTIONS (2)
  - DRUG EXPOSURE DURING PREGNANCY [None]
  - HYPOACUSIS [None]
